FAERS Safety Report 10210748 (Version 2)
Quarter: 2014Q3

REPORT INFORMATION
  Report Type: Spontaneous
  Country: JP (occurrence: JP)
  Receive Date: 20140602
  Receipt Date: 20140717
  Transmission Date: 20150326
  Serious: Yes (Other)
  Sender: FDA-Public Use
  Company Number: JP-009507513-1405JPN013826

PATIENT
  Age: 12 Year
  Sex: Male
  Weight: 34 kg

DRUGS (12)
  1. TEMODAL [Suspect]
     Active Substance: TEMOZOLOMIDE
     Indication: GERM CELL CANCER
     Dosage: 300 MG, 1/1 DAY
     Route: 041
     Dates: start: 20130520, end: 20130524
  2. TOPOTECIN [Concomitant]
     Active Substance: IRINOTECAN HYDROCHLORIDE
     Indication: GERM CELL CANCER
     Dosage: DAILY DOSAGE UNKNOWN
     Route: 041
     Dates: start: 20130520, end: 20131004
  3. LASTET [Concomitant]
     Active Substance: ETOPOSIDE
     Indication: GERM CELL CANCER
     Dosage: DAILY DOSAGE UNKNOWN
     Route: 041
     Dates: start: 20130228, end: 20130829
  4. IFOMIDE [Concomitant]
     Active Substance: IFOSFAMIDE
     Indication: GERM CELL CANCER
     Dosage: DAILY DOSAGE UNKNOWN
     Route: 041
     Dates: start: 20130228, end: 20130829
  5. EMEND [Concomitant]
     Active Substance: APREPITANT
     Indication: PROPHYLAXIS
     Dosage: DAILY DOSAGE UNKNOWN
     Route: 048
     Dates: start: 20130520, end: 20131005
  6. SULFAMETHOXAZOLE AND TRIMETHOPRIM [Concomitant]
     Active Substance: SULFAMETHOXAZOLE\TRIMETHOPRIM
     Indication: ANTIFUNGAL PROPHYLAXIS
     Dosage: DAILY DOSAGE UNKNOWN
     Route: 048
     Dates: end: 20131115
  7. TEMODAL [Suspect]
     Active Substance: TEMOZOLOMIDE
     Dosage: 220 MG, 1/1 DAY
     Route: 041
     Dates: start: 20130930, end: 20131004
  8. CISPLATIN. [Concomitant]
     Active Substance: CISPLATIN
     Indication: GERM CELL CANCER
     Dosage: DAILY DOSAGE UNKNOWN
     Route: 041
     Dates: start: 20130228, end: 20130829
  9. TEMODAL [Suspect]
     Active Substance: TEMOZOLOMIDE
     Dosage: 240 MG, 1/1 DAY
     Route: 041
     Dates: start: 20130722, end: 20130726
  10. GRANISETRON [Concomitant]
     Active Substance: GRANISETRON
     Indication: PROPHYLAXIS
     Dosage: DAILY DOSAGE UNKNOWN
     Route: 041
     Dates: start: 20130520, end: 20131004
  11. MEROPEN [Concomitant]
     Active Substance: MEROPENEM
     Indication: PROPHYLAXIS
     Dosage: DAILY DOSAGE UNKNOWN
     Route: 041
     Dates: start: 20130528, end: 20130531
  12. FAMOTIDINE. [Concomitant]
     Active Substance: FAMOTIDINE
     Indication: PROPHYLAXIS
     Dosage: DAILY DOSAGE UNKNOWN
     Route: 048
     Dates: end: 20131015

REACTIONS (9)
  - Nausea [Recovering/Resolving]
  - Diarrhoea [Recovering/Resolving]
  - Rash [Recovering/Resolving]
  - Anaemia [Recovering/Resolving]
  - Vomiting [Recovering/Resolving]
  - Bone marrow failure [Recovering/Resolving]
  - Pruritus [Recovering/Resolving]
  - Transfusion [Unknown]
  - Diarrhoea [Recovering/Resolving]

NARRATIVE: CASE EVENT DATE: 20130528
